FAERS Safety Report 23972069 (Version 1)
Quarter: 2024Q2

REPORT INFORMATION
  Report Type: Spontaneous
  Country: US (occurrence: US)
  Receive Date: 20240613
  Receipt Date: 20240613
  Transmission Date: 20240715
  Serious: No
  Sender: FDA-Public Use
  Company Number: US-COSETTE-CP2024US000124

PATIENT
  Sex: Female
  Weight: 167 kg

DRUGS (1)
  1. VYLEESI [Suspect]
     Active Substance: BREMELANOTIDE ACETATE
     Indication: Sexual dysfunction
     Route: 058
     Dates: start: 202405

REACTIONS (1)
  - Injection site pain [Recovered/Resolved]
